FAERS Safety Report 8709326 (Version 2)
Quarter: 2012Q4

REPORT INFORMATION
  Report Type: 
  Country: FR (occurrence: FR)
  Receive Date: 20120806
  Receipt Date: 20120910
  Transmission Date: 20130627
  Serious: Yes (Other)
  Sender: FDA-Public Use
  Company Number: FR-ASTRAZENECA-2012SE53791

PATIENT
  Age: 35 Year
  Sex: Female
  Weight: 93 kg

DRUGS (2)
  1. INEXIUM [Suspect]
     Indication: GASTRIC ULCER
     Route: 048
     Dates: start: 2001, end: 20120725
  2. APROVEL [Concomitant]
     Indication: HYPERTENSION
     Route: 048

REACTIONS (3)
  - Gastric polyps [Not Recovered/Not Resolved]
  - Drug ineffective [Recovered/Resolved]
  - Dyspepsia [Unknown]
